FAERS Safety Report 18244545 (Version 1)
Quarter: 2020Q3

REPORT INFORMATION
  Report Type: Spontaneous
  Country: US (occurrence: US)
  Receive Date: 20200909
  Receipt Date: 20200909
  Transmission Date: 20201103
  Serious: Yes (Other)
  Sender: FDA-Public Use
  Company Number: US-AUROBINDO-AUR-APL-2013-09467

PATIENT
  Age: 27 Year
  Sex: Female

DRUGS (7)
  1. CEFOTETAN [Concomitant]
     Active Substance: CEFOTETAN DISODIUM
     Indication: PRODUCT USED FOR UNKNOWN INDICATION
     Dosage: 2 GRAM
     Route: 042
  2. ERYTHROMYCIN. [Suspect]
     Active Substance: ERYTHROMYCIN
     Indication: DIABETIC GASTROPARESIS
     Dosage: UNK
     Route: 065
  3. ESOMEPRAZOLE. [Suspect]
     Active Substance: ESOMEPRAZOLE MAGNESIUM
     Indication: DIABETIC GASTROPARESIS
     Dosage: UNK
     Route: 065
  4. METOCLOPRAMIDE HCL [Suspect]
     Active Substance: METOCLOPRAMIDE HYDROCHLORIDE
     Indication: DIABETIC GASTROPARESIS
     Dosage: UNK
     Route: 065
  5. ONDANSETRON [Suspect]
     Active Substance: ONDANSETRON
     Indication: DIABETIC GASTROPARESIS
     Dosage: UNK
     Route: 065
  6. PROMETHAZINE HCL [Suspect]
     Active Substance: PROMETHAZINE HYDROCHLORIDE
     Indication: DIABETIC GASTROPARESIS
     Dosage: UNK UNK,UNK,
     Route: 065
  7. DOMPERIDONE [Suspect]
     Active Substance: DOMPERIDONE
     Indication: DIABETIC GASTROPARESIS
     Dosage: UNK
     Route: 065

REACTIONS (4)
  - Diabetic gastroparesis [Unknown]
  - Off label use [Unknown]
  - Drug ineffective for unapproved indication [Unknown]
  - Drug ineffective [Unknown]
